FAERS Safety Report 14247034 (Version 4)
Quarter: 2018Q3

REPORT INFORMATION
  Report Type: Spontaneous
  Country: FR (occurrence: FR)
  Receive Date: 20171204
  Receipt Date: 20180827
  Transmission Date: 20181010
  Serious: Yes (Hospitalization, Other)
  Sender: FDA-Public Use
  Company Number: PHHY2017FR174787

PATIENT
  Age: 63 Year
  Sex: Male

DRUGS (4)
  1. CORTIVAZOL [Suspect]
     Active Substance: CORTIVAZOL
     Indication: TENOSYNOVITIS
     Dosage: 120 OT, UNK
     Route: 065
     Dates: start: 201312, end: 201312
  2. METHOTREXATE. [Suspect]
     Active Substance: METHOTREXATE
     Indication: RHEUMATOID ARTHRITIS
     Dosage: 20 MG, QW
     Route: 065
  3. PREDNISONE. [Suspect]
     Active Substance: PREDNISONE
     Indication: RHEUMATOID ARTHRITIS
     Dosage: 7 MG, QD
     Route: 065
  4. CORTIVAZOL [Suspect]
     Active Substance: CORTIVAZOL
     Indication: ANTIFUNGAL TREATMENT
     Dosage: 120 OT, UNK
     Route: 065
     Dates: start: 201304, end: 201304

REACTIONS (6)
  - Skin warm [Unknown]
  - Pain [Recovered/Resolved]
  - Infective tenosynovitis [Recovered/Resolved]
  - Arthritis bacterial [Recovered/Resolved]
  - Phaehyphomycosis [Recovered/Resolved]
  - Subcutaneous abscess [Recovered/Resolved]

NARRATIVE: CASE EVENT DATE: 201304
